FAERS Safety Report 10314671 (Version 1)
Quarter: 2014Q3

REPORT INFORMATION
  Report Type: Report from Study
  Country: FR (occurrence: FR)
  Receive Date: 20140718
  Receipt Date: 20140718
  Transmission Date: 20150326
  Serious: Yes (Other)
  Sender: FDA-Public Use
  Company Number: FR-MYLANLABS-2014S1016095

PATIENT
  Age: 45 Year
  Sex: Female

DRUGS (4)
  1. MITOXANTRONE [Suspect]
     Active Substance: MITOXANTRONE HYDROCHLORIDE
     Indication: ACUTE LEUKAEMIA
     Route: 042
     Dates: start: 20100520, end: 20100521
  2. MITOXANTRONE [Suspect]
     Active Substance: MITOXANTRONE HYDROCHLORIDE
     Indication: ACUTE LEUKAEMIA
     Route: 042
     Dates: start: 20100505, end: 20100506
  3. CYTARABINE. [Suspect]
     Active Substance: CYTARABINE
     Indication: ACUTE LEUKAEMIA
     Route: 042
     Dates: start: 20100520, end: 20100522
  4. CYTARABINE. [Suspect]
     Active Substance: CYTARABINE
     Indication: ACUTE LEUKAEMIA
     Route: 042
     Dates: start: 20100505, end: 20100511

REACTIONS (1)
  - Febrile bone marrow aplasia [Recovered/Resolved]
